FAERS Safety Report 11225231 (Version 2)
Quarter: 2015Q3

REPORT INFORMATION
  Report Type: Spontaneous
  Country: FR (occurrence: FR)
  Receive Date: 20150629
  Receipt Date: 20150710
  Transmission Date: 20151125
  Serious: Yes (Hospitalization, Other)
  Sender: FDA-Public Use
  Company Number: FR-PFIZER INC-2015210711

PATIENT
  Age: 80 Year
  Sex: Male

DRUGS (8)
  1. DEPAKINE CHRONO [Concomitant]
     Active Substance: VALPROATE SODIUM
     Dosage: 500 MG, 1X/DAY
  2. SKENAN [Interacting]
     Active Substance: MORPHINE SULFATE
     Dosage: 10 MG, 2X/DAY
     Route: 048
     Dates: start: 20150218, end: 20150223
  3. ACTISKENAN [Interacting]
     Active Substance: MORPHINE SULFATE
     Dosage: 20 TO 60 MG DAILY
     Route: 048
     Dates: end: 20150217
  4. CYMBALTA [Interacting]
     Active Substance: DULOXETINE HYDROCHLORIDE
     Dosage: 30 MG, DAILY
     Route: 048
     Dates: start: 20150217, end: 20150223
  5. XANAX [Suspect]
     Active Substance: ALPRAZOLAM
     Dosage: 0.5 MG, DAILY
     Route: 048
     Dates: start: 20150218, end: 20150223
  6. ACTISKENAN [Interacting]
     Active Substance: MORPHINE SULFATE
     Dosage: 120 MG, DAILY
     Route: 048
     Dates: start: 20150218, end: 20150223
  7. NORSET [Concomitant]
     Active Substance: MIRTAZAPINE
     Dosage: 15 MG, DAILY
     Dates: start: 20150225
  8. PREVISCAN /00789001/ [Concomitant]
     Active Substance: FLUINDIONE
     Dosage: 10 MG, DAILY

REACTIONS (9)
  - Anxiety [Unknown]
  - Hemiparesis [Unknown]
  - Speech disorder [Unknown]
  - Hypotonia [Unknown]
  - Confusional state [Recovered/Resolved]
  - Drug interaction [Recovered/Resolved]
  - Somnolence [Recovered/Resolved]
  - Respiratory depression [Recovered/Resolved]
  - Persecutory delusion [Unknown]

NARRATIVE: CASE EVENT DATE: 201502
